FAERS Safety Report 5205741-4 (Version None)
Quarter: 2007Q1

REPORT INFORMATION
  Report Type: 
  Country: None (occurrence: None)
  Receive Date: 20070105
  Receipt Date: 20070105
  Transmission Date: 20070707
  Serious: Yes (Hospitalization)
  Sender: FDA-Public Use
  Company Number: None

PATIENT
  Age: 68 Year
  Sex: Male
  Weight: 89.1 kg

DRUGS (13)
  1. FUROSEMIDE [Suspect]
     Indication: PERICARDIAL EFFUSION
     Dosage: 40 MG ONCE DAILY PO
     Route: 048
     Dates: start: 20060613
  2. METOPROLOL SUCCINATE [Suspect]
     Indication: MYOCARDIAL INFARCTION
     Dosage: 100 MG AT BEDTIME PO
     Route: 048
     Dates: start: 20060613
  3. LISINOPRIL [Concomitant]
  4. ASPIRIN [Concomitant]
  5. ATORVASTATIN CALCIUM [Concomitant]
  6. CLOPIDOGREL [Concomitant]
  7. CYANOCOBALAMIN [Concomitant]
  8. NITROGLYCERIN SL [Concomitant]
  9. OMEPRAZOLE [Concomitant]
  10. AMITRIPTYLINE HCL [Concomitant]
  11. DIGOXIN [Concomitant]
  12. SPIRPNP;ACTONE [Concomitant]
  13. WARFARIN SODIUM [Concomitant]

REACTIONS (4)
  - DIZZINESS [None]
  - FALL [None]
  - HYPOTENSION [None]
  - PRESYNCOPE [None]
